FAERS Safety Report 5523920-3 (Version None)
Quarter: 2007Q4

REPORT INFORMATION
  Report Type: 
  Country: None (occurrence: None)
  Receive Date: 20071121
  Receipt Date: 20071115
  Transmission Date: 20080405
  Serious: Yes (Life-Threatening, Hospitalization)
  Sender: FDA-Public Use
  Company Number: US-SHR-US-2007-043486

PATIENT
  Age: 67 Year
  Sex: Female

DRUGS (9)
  1. MAGNEVIST [Suspect]
     Dosage: 20 ML, 1 DOSE
     Route: 042
     Dates: start: 20071025, end: 20071025
  2. HYDROCHLOROTHIAZIDE [Concomitant]
  3. ATENOLOL [Concomitant]
  4. DIOVAN [Concomitant]
  5. AZATHIOPRINE [Concomitant]
  6. ACETANOL [Concomitant]
  7. M.V.I. [Concomitant]
  8. VITAMIN B-12 [Concomitant]
  9. CAFFEINE [Concomitant]

REACTIONS (5)
  - CARDIO-RESPIRATORY ARREST [None]
  - CONVULSION [None]
  - DIZZINESS [None]
  - NAUSEA [None]
  - SYNCOPE VASOVAGAL [None]
